FAERS Safety Report 7918056-8 (Version None)
Quarter: 2011Q4

REPORT INFORMATION
  Report Type: 
  Country: None (occurrence: None)
  Receive Date: 20111116
  Receipt Date: 20111110
  Transmission Date: 20120403
  Serious: Yes (Hospitalization)
  Sender: FDA-Public Use
  Company Number: US-MERCK-1109USA01910

PATIENT
  Age: 67 Year
  Sex: Female

DRUGS (7)
  1. FOSAMAX [Suspect]
     Indication: OSTEOPOROSIS
     Route: 048
     Dates: start: 20001010, end: 20020101
  2. FOSAMAX [Suspect]
     Indication: BONE LOSS
     Route: 048
     Dates: start: 20001010, end: 20020101
  3. ALENDRONATE SODIUM [Suspect]
     Indication: OSTEOPOROSIS
     Route: 048
     Dates: start: 20080323, end: 20080101
  4. FOSAMAX [Suspect]
     Route: 048
     Dates: start: 20060519, end: 20080111
  5. FOSAMAX [Suspect]
     Route: 048
     Dates: start: 20020528, end: 20060518
  6. FOSAMAX [Suspect]
     Route: 048
     Dates: start: 20020528, end: 20060518
  7. FOSAMAX [Suspect]
     Route: 048
     Dates: start: 20060519, end: 20080111

REACTIONS (36)
  - ALLERGIC SINUSITIS [None]
  - CONTUSION [None]
  - RESPIRATORY DISORDER [None]
  - CHONDROPATHY [None]
  - STRESS URINARY INCONTINENCE [None]
  - FEMUR FRACTURE [None]
  - VARICOSE VEIN [None]
  - VITAMIN D DEFICIENCY [None]
  - SPONDYLITIS [None]
  - OSTEOARTHRITIS [None]
  - INTERVERTEBRAL DISC DEGENERATION [None]
  - TOOTH DISORDER [None]
  - BACK DISORDER [None]
  - CARDIAC DISORDER [None]
  - DIZZINESS [None]
  - ADVERSE DRUG REACTION [None]
  - KYPHOSIS [None]
  - RHINITIS ALLERGIC [None]
  - CYST [None]
  - CARDIAC FAILURE CONGESTIVE [None]
  - URTICARIA [None]
  - UPPER RESPIRATORY TRACT INFECTION [None]
  - PSORIASIS [None]
  - DYSLIPIDAEMIA [None]
  - FALL [None]
  - OTITIS MEDIA [None]
  - STRESS [None]
  - LIGAMENT SPRAIN [None]
  - SKIN ULCER [None]
  - DEPRESSION [None]
  - OTITIS EXTERNA [None]
  - PULMONARY FIBROSIS [None]
  - PANIC DISORDER [None]
  - CATARACT [None]
  - BALANCE DISORDER [None]
  - EXOSTOSIS [None]
